FAERS Safety Report 11254287 (Version 2)
Quarter: 2015Q3

REPORT INFORMATION
  Report Type: Spontaneous
  Country: JP (occurrence: JP)
  Receive Date: 20150709
  Receipt Date: 20150710
  Transmission Date: 20151125
  Serious: Yes (Other)
  Sender: FDA-Public Use
  Company Number: JP-ACTAVIS-2015-12615

PATIENT
  Age: 49 Year
  Sex: Male

DRUGS (1)
  1. URSO [Suspect]
     Active Substance: URSODIOL
     Indication: HEPATIC FUNCTION ABNORMAL
     Dosage: 600 MG, DAILY
     Route: 048
     Dates: start: 20150116, end: 20150612

REACTIONS (2)
  - Pancytopenia [Unknown]
  - Lymphadenopathy [Unknown]

NARRATIVE: CASE EVENT DATE: 20150612
